FAERS Safety Report 6820263-2 (Version None)
Quarter: 2010Q3

REPORT INFORMATION
  Report Type: 
  Country: None (occurrence: None)
  Receive Date: 20100707
  Receipt Date: 20100629
  Transmission Date: 20110219
  Serious: Yes (Other)
  Sender: FDA-Public Use
  Company Number: US-PFIZER INC-2010074209

PATIENT
  Age: 58 Year
  Sex: Male

DRUGS (12)
  1. METFORMIN HCL [Interacting]
     Indication: TYPE 2 DIABETES MELLITUS
     Dosage: 1000 MG, 2X/DAY
     Route: 065
  2. METFORMIN HCL [Interacting]
     Dosage: 500 MG, 2X/DAY
     Route: 065
  3. GLIPIZIDE [Suspect]
     Indication: TYPE 2 DIABETES MELLITUS
     Dosage: 10 MG, 1X/DAY
     Route: 065
  4. PRICKLY PEAR CACTUS [Interacting]
     Indication: BLOOD GLUCOSE INCREASED
     Dosage: APPROXIMATELY 15.24 CM IN LENGTH
     Route: 065
  5. ROSUVASTATIN [Concomitant]
     Dosage: 10 MG, (AT BEDTIME)
     Route: 065
  6. FENOFIBRATE [Concomitant]
     Dosage: 145 MG, 1X/DAY
     Route: 065
  7. ACETYLSALICYLIC ACID [Concomitant]
     Dosage: 81 MG, 1X/DAY
     Route: 065
  8. LISINOPRIL [Concomitant]
     Dosage: 5 MG, 1X/DAY
     Route: 065
  9. GABAPENTIN [Concomitant]
     Indication: PRODUCT USED FOR UNKNOWN INDICATION
     Dosage: 300 MG, 2X/DAY
     Route: 065
  10. TRAMADOL [Concomitant]
     Dosage: 50 MG, EVERY 6 HOURS
     Route: 065
  11. NABUMETONE [Concomitant]
     Dosage: 500 MG, 2X/DAY
     Route: 065
  12. NITROGLYCERIN [Concomitant]
     Indication: CHEST PAIN
     Dosage: 0.4 MG, AS NEEDED
     Route: 065

REACTIONS (2)
  - DRUG INTERACTION [None]
  - HYPOGLYCAEMIA [None]
